FAERS Safety Report 8798407 (Version 3)
Quarter: 2014Q2

REPORT INFORMATION
  Report Type: Spontaneous
  Country: FR (occurrence: FR)
  Receive Date: 20120920
  Receipt Date: 20131017
  Transmission Date: 20141212
  Serious: Yes (Other)
  Sender: FDA-Public Use
  Company Number: FR-PFIZER INC-2012226680

PATIENT
  Age: 48 Year
  Sex: Female

DRUGS (2)
  1. VANCOMYCIN HCL [Suspect]
     Indication: OSTEOMYELITIS
     Dosage: UNK
     Route: 042
  2. CEFTRIAXONE [Suspect]
     Indication: OSTEOMYELITIS
     Dosage: UNK
     Route: 042

REACTIONS (2)
  - Deep vein thrombosis [Recovered/Resolved]
  - Air embolism [Recovered/Resolved]
